FAERS Safety Report 9652095 (Version 2)
Quarter: 2013Q4

REPORT INFORMATION
  Report Type: Spontaneous
  Country: US (occurrence: US)
  Receive Date: 20131029
  Receipt Date: 20131115
  Transmission Date: 20140711
  Serious: No
  Sender: FDA-Public Use
  Company Number: US-BAXTER-2013BAX041595

PATIENT
  Age: 67 Year
  Sex: Female

DRUGS (3)
  1. DIANEAL LOW CALCIUM [Suspect]
     Indication: PERITONEAL DIALYSIS
     Route: 033
  2. DIANEAL LOW CALCIUM [Suspect]
     Indication: PERITONEAL DIALYSIS
     Route: 033
     Dates: start: 201308
  3. DIANEAL LOW CALCIUM [Suspect]
     Dosage: 1 CYCLE DAILY AS NEEDED
     Route: 033
     Dates: start: 201308

REACTIONS (3)
  - Weight increased [Recovered/Resolved]
  - Procedural pain [Recovered/Resolved]
  - Constipation [Recovering/Resolving]
